FAERS Safety Report 9744162 (Version 2)
Quarter: 2014Q2

REPORT INFORMATION
  Report Type: Spontaneous
  Country: US (occurrence: US)
  Receive Date: 20131210
  Receipt Date: 20140428
  Transmission Date: 20141212
  Serious: Yes (Hospitalization)
  Sender: FDA-Public Use
  Company Number: US-PFIZER INC-2013351035

PATIENT
  Age: 68 Year
  Sex: Female
  Weight: 107 kg

DRUGS (14)
  1. GLUCOTROL XL [Suspect]
     Indication: DIABETES MELLITUS
     Dosage: 10 MG, 2X/DAY
     Route: 048
  2. GLUCOTROL XL [Suspect]
     Dosage: 10 MG, 2X/DAY
     Route: 048
  3. GLIPIZIDE [Suspect]
     Indication: DIABETES MELLITUS
     Dosage: UNK, 2X/DAY
     Route: 048
  4. DILTIAZEM [Concomitant]
     Indication: HYPERTENSION
     Dosage: UNK
  5. NEURONTIN [Concomitant]
     Dosage: 300 MG, 2X/DAY
     Route: 048
  6. CELEBREX [Concomitant]
     Dosage: 200 MG, 2X/DAY
     Route: 048
  7. DETROL [Concomitant]
     Dosage: UNK
  8. DETROL LA [Concomitant]
  9. HYDROCODONE [Concomitant]
     Dosage: UNK
  10. MINOCYCLINE [Concomitant]
     Dosage: UNK
  11. VITAMIN C [Concomitant]
     Dosage: UNK
  12. COD LIVER OIL [Concomitant]
     Dosage: UNK
  13. GARLIC [Concomitant]
     Dosage: UNK
  14. VENTOLIN [Concomitant]
     Dosage: UNK

REACTIONS (3)
  - Ankle fracture [Unknown]
  - Blood glucose abnormal [Unknown]
  - Drug ineffective [Unknown]
